FAERS Safety Report 11475851 (Version 1)
Quarter: 2015Q3

REPORT INFORMATION
  Report Type: Spontaneous
  Country: US (occurrence: US)
  Receive Date: 20150909
  Receipt Date: 20150909
  Transmission Date: 20151125
  Serious: No
  Sender: FDA-Public Use
  Company Number: US-JAZZ-2014-US-009105

PATIENT
  Sex: Female

DRUGS (2)
  1. XYREM [Suspect]
     Active Substance: SODIUM OXYBATE
     Indication: RESTLESS LEGS SYNDROME
     Dosage: 2.25 G, BID
     Route: 048
     Dates: start: 201302, end: 201311
  2. XYREM [Suspect]
     Active Substance: SODIUM OXYBATE
     Dosage: 3.5 G, BID
     Route: 048
     Dates: start: 201311

REACTIONS (2)
  - Off label use [Unknown]
  - Seasonal allergy [Not Recovered/Not Resolved]
